FAERS Safety Report 17961751 (Version 1)
Quarter: 2020Q2

REPORT INFORMATION
  Report Type: Spontaneous
  Country: US (occurrence: US)
  Receive Date: 20200629
  Receipt Date: 20200629
  Transmission Date: 20200714
  Serious: Yes (Other)
  Sender: FDA-Public Use
  Company Number: None

PATIENT
  Age: 51 Year
  Sex: Male

DRUGS (1)
  1. VICKS VAPORUB [Suspect]
     Active Substance: CAMPHOR (SYNTHETIC)\EUCALYPTUS OIL\MENTHOL
     Indication: ONYCHOMYCOSIS
     Route: 061
     Dates: start: 20200225, end: 20200302

REACTIONS (2)
  - Off label use [None]
  - Skin exfoliation [None]

NARRATIVE: CASE EVENT DATE: 20200302
